FAERS Safety Report 4972998-4 (Version None)
Quarter: 2006Q2

REPORT INFORMATION
  Report Type: 
  Country: None (occurrence: None)
  Receive Date: 20060414
  Receipt Date: 20060404
  Transmission Date: 20061013
  Serious: Yes (Hospitalization)
  Sender: FDA-Public Use
  Company Number: FR-GLAXOSMITHKLINE-B0418972A

PATIENT
  Age: 56 Year
  Sex: Male
  Weight: 71 kg

DRUGS (4)
  1. AVANDIA [Suspect]
     Dosage: 4MG PER DAY
     Route: 048
     Dates: start: 20051005
  2. ZYPREXA [Concomitant]
     Route: 048
     Dates: start: 20050425, end: 20060313
  3. DIAMICRON [Concomitant]
     Dosage: 30MG PER DAY
     Route: 048
     Dates: start: 20051005
  4. FLUVOXAMINE MALEATE [Concomitant]
     Dosage: 100MG PER DAY
     Route: 048
     Dates: start: 20050315, end: 20050427

REACTIONS (3)
  - BLOOD CHOLESTEROL INCREASED [None]
  - HYPERTRIGLYCERIDAEMIA [None]
  - WEIGHT INCREASED [None]
